FAERS Safety Report 21872102 (Version 1)
Quarter: 2023Q1

REPORT INFORMATION
  Report Type: Spontaneous
  Country: CN (occurrence: CN)
  Receive Date: 20230117
  Receipt Date: 20230117
  Transmission Date: 20230417
  Serious: Yes (Other)
  Sender: FDA-Public Use
  Company Number: CN-002147023-NVSC2023CN009033

PATIENT
  Age: 67 Year
  Sex: Male

DRUGS (1)
  1. CYCLOSPORINE [Suspect]
     Active Substance: CYCLOSPORINE
     Indication: Acquired amegakaryocytic thrombocytopenia
     Dosage: 100 MG, QD
     Route: 065

REACTIONS (2)
  - Pneumonia [Unknown]
  - Product use in unapproved indication [Unknown]
